FAERS Safety Report 6398866-1 (Version None)
Quarter: 2009Q4

REPORT INFORMATION
  Report Type: 
  Country: None (occurrence: None)
  Receive Date: 20091013
  Receipt Date: 20091001
  Transmission Date: 20100525
  Serious: Yes (Hospitalization)
  Sender: FDA-Public Use
  Company Number: DE-AMGEN-US360322

PATIENT
  Sex: Male
  Weight: 68 kg

DRUGS (6)
  1. ENBREL [Suspect]
     Indication: PSORIATIC ARTHROPATHY
     Route: 058
     Dates: start: 20080401
  2. OMEPRAZOLE [Concomitant]
     Route: 048
     Dates: start: 20071201
  3. FOLIC ACID [Concomitant]
     Route: 048
  4. CELEBREX [Concomitant]
     Indication: PSORIATIC ARTHROPATHY
     Dosage: UNKNOWN AMOUNT WHEN NEEDED
     Route: 048
  5. METEX [Concomitant]
     Indication: PSORIATIC ARTHROPATHY
     Route: 058
  6. RAMIPRIL [Concomitant]
     Indication: HYPERTENSION
     Route: 048
     Dates: start: 20090101

REACTIONS (9)
  - CEREBRAL MICROANGIOPATHY [None]
  - CEREBROVASCULAR ACCIDENT [None]
  - CONDITION AGGRAVATED [None]
  - HEMIPLEGIA [None]
  - HYPERTENSION [None]
  - LOW DENSITY LIPOPROTEIN INCREASED [None]
  - LYMPHOCYTE COUNT INCREASED [None]
  - PSORIATIC ARTHROPATHY [None]
  - TRANSIENT ISCHAEMIC ATTACK [None]
